FAERS Safety Report 7721441-0 (Version None)
Quarter: 2011Q3

REPORT INFORMATION
  Report Type: 
  Country: None (occurrence: None)
  Receive Date: 20110831
  Receipt Date: 20110817
  Transmission Date: 20111222
  Serious: Yes (Life-Threatening, Hospitalization)
  Sender: FDA-Public Use
  Company Number: DE-ROCHE-799390

PATIENT
  Sex: Male
  Weight: 93 kg

DRUGS (5)
  1. EFUDEX [Suspect]
     Indication: METASTATIC GASTRIC CANCER
     Dosage: ACCORDING TO FOLFIRI REGIMEN
     Route: 040
     Dates: start: 20110513, end: 20110711
  2. LEUCOVORIN CALCIUM [Concomitant]
     Indication: METASTATIC GASTRIC CANCER
     Dosage: ACCORDING TO FOLFIRI REGIMEN
     Route: 042
     Dates: start: 20110513, end: 20110711
  3. TRASTUZUMAB [Suspect]
     Indication: METASTATIC GASTRIC CANCER
     Dosage: 16 INJECTIONS GIVEN
     Route: 042
     Dates: start: 20101115, end: 20110708
  4. IRINOTECAN HCL [Suspect]
     Indication: METASTATIC GASTRIC CANCER
     Dosage: 180 MG/ML, ACCORDING TO FOLFIRI REGIMEN
     Route: 042
     Dates: start: 20110513, end: 20110711
  5. EFUDEX [Suspect]
     Dosage: ACCORDING TO FOLFIRI REGIMEN
     Route: 042
     Dates: start: 20110513, end: 20110711

REACTIONS (1)
  - ARRHYTHMIA [None]
